FAERS Safety Report 24075693 (Version 1)
Quarter: 2024Q3

REPORT INFORMATION
  Report Type: Spontaneous
  Country: CN (occurrence: CN)
  Receive Date: 20240710
  Receipt Date: 20240710
  Transmission Date: 20241017
  Serious: Yes (Hospitalization, Other)
  Sender: NOVARTIS
  Company Number: CN-002147023-NVSC2024CN142463

PATIENT
  Age: 68 Year
  Sex: Male

DRUGS (3)
  1. CYCLOSPORINE [Suspect]
     Active Substance: CYCLOSPORINE
     Indication: Myelodysplastic syndrome
     Dosage: 75 MG, BID
     Route: 048
     Dates: start: 20240525, end: 20240603
  2. STANOZOLOL [Concomitant]
     Active Substance: STANOZOLOL
     Indication: Myelodysplastic syndrome
     Dosage: 1 DOSAGE FORM, TID
     Route: 048
     Dates: start: 20240525, end: 20240603
  3. SODIUM BICARBONATE [Concomitant]
     Active Substance: SODIUM BICARBONATE
     Indication: Myelodysplastic syndrome
     Dosage: 2 DOSAGE FORM, BID
     Route: 048
     Dates: start: 20240525, end: 20240603

REACTIONS (3)
  - Nephropathy toxic [Recovering/Resolving]
  - Respiratory tract infection [Unknown]
  - Off label use [Unknown]

NARRATIVE: CASE EVENT DATE: 20240525
